APPROVED DRUG PRODUCT: GLYCOPYRROLATE
Active Ingredient: GLYCOPYRROLATE
Strength: 1MG
Dosage Form/Route: TABLET;ORAL
Application: A202675 | Product #001 | TE Code: AA
Applicant: AUROBINDO PHARMA LTD
Approved: Apr 15, 2013 | RLD: No | RS: No | Type: RX